FAERS Safety Report 9418027 (Version 2)
Quarter: 2013Q3

REPORT INFORMATION
  Report Type: Spontaneous
  Country: US (occurrence: US)
  Receive Date: 20130724
  Receipt Date: 20130913
  Transmission Date: 20140515
  Serious: No
  Sender: FDA-Public Use
  Company Number: US-009507513-1306USA008317

PATIENT
  Sex: Male
  Weight: 97.51 kg

DRUGS (2)
  1. CLARITIN-D-12 [Suspect]
     Indication: HYPERSENSITIVITY
     Dosage: 5 MG, Q12H
     Route: 048
  2. CLARITIN-D-12 [Suspect]
     Indication: MEDICAL OBSERVATION

REACTIONS (1)
  - Insomnia [Recovered/Resolved]
